FAERS Safety Report 11203679 (Version 1)
Quarter: 2015Q2

REPORT INFORMATION
  Report Type: Report from Study
  Country: CA (occurrence: CA)
  Receive Date: 20150619
  Receipt Date: 20150619
  Transmission Date: 20150821
  Serious: Yes (Other)
  Sender: FDA-Public Use
  Company Number: CA-ABBVIE-15K-028-1329864-00

PATIENT
  Sex: Male
  Weight: 86.26 kg

DRUGS (2)
  1. HYDROCODONE [Concomitant]
     Active Substance: HYDROCODONE
     Indication: BACK PAIN
     Dosage: 18 MG / 24 MG
     Route: 048
  2. HUMIRA [Suspect]
     Active Substance: ADALIMUMAB
     Indication: PSORIATIC ARTHROPATHY
     Route: 058
     Dates: start: 20130716, end: 20141215

REACTIONS (6)
  - Onychomycosis [Recovered/Resolved]
  - Nail growth abnormal [Recovered/Resolved]
  - Nail disorder [Recovered/Resolved]
  - Psoriatic arthropathy [Not Recovered/Not Resolved]
  - Carpal tunnel syndrome [Not Recovered/Not Resolved]
  - Soft tissue infection [Recovered/Resolved]

NARRATIVE: CASE EVENT DATE: 2015
